FAERS Safety Report 9053576 (Version 1)
Quarter: 2013Q1

REPORT INFORMATION
  Report Type: Spontaneous
  Country: US (occurrence: US)
  Receive Date: 20130208
  Receipt Date: 20130208
  Transmission Date: 20140127
  Serious: No
  Sender: FDA-Public Use
  Company Number: US-TARO-2012P1056241

PATIENT
  Age: 58 Year
  Sex: Female
  Weight: 78.93 kg

DRUGS (11)
  1. NYSTATIN + TRIAMCINOLONE ACETONIDE CREAM USP [Suspect]
     Indication: RASH
     Route: 061
     Dates: start: 20120607, end: 201207
  2. ACTOS [Concomitant]
  3. LISINOPRIL [Concomitant]
  4. TOPROL XL [Concomitant]
  5. NORVASC [Concomitant]
  6. VITAMIN E [Concomitant]
  7. OSCAL [Concomitant]
  8. PRAVASTATIN [Concomitant]
  9. ESTRADIOL [Concomitant]
  10. FUROSEMIDE [Concomitant]
  11. OXYCODONE [Concomitant]
     Indication: PAIN

REACTIONS (3)
  - Application site discolouration [Not Recovered/Not Resolved]
  - Application site pain [Recovering/Resolving]
  - Application site irritation [Recovered/Resolved]
